FAERS Safety Report 6924144-5 (Version None)
Quarter: 2010Q3

REPORT INFORMATION
  Report Type: 
  Country: None (occurrence: None)
  Receive Date: 20100812
  Receipt Date: 20100812
  Transmission Date: 20110219
  Serious: Yes (Other)
  Sender: FDA-Public Use
  Company Number: None

PATIENT
  Age: 1 Year

DRUGS (1)
  1. ETOMIDATE [Suspect]
     Indication: INDUCTION OF ANAESTHESIA
     Dosage: INDIVIDUAL
     Dates: start: 20100601, end: 20100811

REACTIONS (2)
  - PHLEBITIS [None]
  - PRODUCT QUALITY ISSUE [None]
